FAERS Safety Report 5699288-9 (Version None)
Quarter: 2008Q2

REPORT INFORMATION
  Report Type: 
  Country: None (occurrence: None)
  Receive Date: 20080404
  Receipt Date: 20080325
  Transmission Date: 20081010
  Serious: Yes (Other)
  Sender: FDA-Public Use
  Company Number: 232868J08USA

PATIENT
  Age: 35 Year
  Sex: Female

DRUGS (2)
  1. REBIF [Suspect]
     Indication: MULTIPLE SCLEROSIS
     Dosage: 44 MCG, 3 IN 1 WEEKS, SUBCUTANEOUS
     Route: 058
     Dates: start: 20071002
  2. AMBIEN CR [Concomitant]

REACTIONS (8)
  - BLOOD DISORDER [None]
  - DISEASE RECURRENCE [None]
  - INFECTION [None]
  - OEDEMA PERIPHERAL [None]
  - POISONING [None]
  - SKIN HAEMORRHAGE [None]
  - TINEA INFECTION [None]
  - URINARY INCONTINENCE [None]
